FAERS Safety Report 6218946-0 (Version None)
Quarter: 2009Q2

REPORT INFORMATION
  Report Type: 
  Country: None (occurrence: None)
  Receive Date: 20090608
  Receipt Date: 20080604
  Transmission Date: 20091009
  Serious: Yes (Hospitalization, Other)
  Sender: FDA-Public Use
  Company Number: PHHY2008FR09590

PATIENT
  Sex: Female

DRUGS (6)
  1. TOFRANIL [Suspect]
     Dosage: 25 MG, QD
  2. NISIS [Suspect]
     Dosage: 2 DF/QD
     Route: 048
  3. TERCIAN [Suspect]
     Dosage: 40 MG/ML, 45 DRIPS IN EVENING
     Route: 048
  4. LAROXYL [Suspect]
     Dosage: 40 MG/ML, 45 DRIPS ON EVENING
     Route: 048
  5. SINEMET [Suspect]
     Dosage: UNK
     Route: 048
  6. LORMETAZEPAM [Concomitant]

REACTIONS (13)
  - ARRHYTHMIA [None]
  - ATRIAL FIBRILLATION [None]
  - BLOOD PRESSURE INCREASED [None]
  - C-REACTIVE PROTEIN INCREASED [None]
  - EXTRAPYRAMIDAL DISORDER [None]
  - FALL [None]
  - FIBRIN D DIMER INCREASED [None]
  - HEART RATE INCREASED [None]
  - MALAISE [None]
  - ORTHOSTATIC HYPOTENSION [None]
  - PARKINSONISM [None]
  - RALES [None]
  - TREMOR [None]
